FAERS Safety Report 5168482-8 (Version None)
Quarter: 2006Q4

REPORT INFORMATION
  Report Type: 
  Country: None (occurrence: None)
  Receive Date: 20061208
  Receipt Date: 20061127
  Transmission Date: 20070319
  Serious: Yes (Other)
  Sender: FDA-Public Use
  Company Number: PHBS2006BE18590

PATIENT
  Age: 68 Year
  Sex: Female

DRUGS (7)
  1. ZOMETA [Suspect]
     Indication: MULTIPLE MYELOMA
     Dosage: 4 MG, EVERY 4 WEEKS
     Route: 042
     Dates: start: 20031118, end: 20050421
  2. MELPHALAN [Concomitant]
     Dosage: UNK, EVERY 5 WEEKS
     Route: 065
     Dates: start: 20031209, end: 20040321
  3. PREDNISONE TAB [Concomitant]
     Dosage: UNK, EVERY 5 WEEKS
     Route: 065
     Dates: start: 20031209, end: 20040321
  4. DEXAMETHASONE [Concomitant]
     Dosage: 20 MG, X2 FOR 4 DAYS EVERY 21 DAYS
     Route: 065
     Dates: start: 20040420, end: 20040711
  5. DEXAMETHASONE [Concomitant]
     Dosage: 20 MG, X 2 FOR 4 DAYS EVERY 28 DAYS
     Route: 065
     Dates: start: 20040805, end: 20050421
  6. LEVOTHYROXINE SODIUM [Concomitant]
     Dosage: 0.1 MG, QD
     Route: 065
     Dates: start: 19960101
  7. URSOCHOL [Concomitant]
     Dosage: 300 MG, QD
     Route: 065
     Dates: start: 20020814

REACTIONS (2)
  - IMPAIRED HEALING [None]
  - TOOTH EXTRACTION [None]
